FAERS Safety Report 11432259 (Version 2)
Quarter: 2015Q3

REPORT INFORMATION
  Report Type: Spontaneous
  Country: US (occurrence: US)
  Receive Date: 20150828
  Receipt Date: 20150903
  Transmission Date: 20151125
  Serious: Yes (Other)
  Sender: FDA-Public Use
  Company Number: US-PFIZER INC-2015286521

PATIENT
  Age: 41 Year
  Sex: Female
  Weight: 66 kg

DRUGS (1)
  1. DEPO-PROVERA [Suspect]
     Active Substance: MEDROXYPROGESTERONE ACETATE
     Indication: OVULATION PAIN
     Dosage: 1 DF, EVERY 3 MONTHS (ONCE EVERY 12 WEEKS)
     Dates: start: 201502, end: 201504

REACTIONS (2)
  - Off label use [Unknown]
  - Menometrorrhagia [Not Recovered/Not Resolved]

NARRATIVE: CASE EVENT DATE: 201502
